FAERS Safety Report 6040818-5 (Version None)
Quarter: 2009Q1

REPORT INFORMATION
  Report Type: 
  Country: None (occurrence: None)
  Receive Date: 20090116
  Receipt Date: 20080604
  Transmission Date: 20090719
  Serious: No
  Sender: FDA-Public Use
  Company Number: US-BRISTOL-MYERS SQUIBB COMPANY-14215859

PATIENT
  Age: 34 Year
  Sex: Female
  Weight: 92 kg

DRUGS (5)
  1. ABILIFY [Suspect]
     Indication: BIPOLAR II DISORDER
     Dosage: 40MG AT TIME OF DISCONTINUATION
     Dates: start: 20050301, end: 20071201
  2. WELLBUTRIN [Concomitant]
  3. KLONOPIN [Concomitant]
  4. MIRTAZAPINE [Concomitant]
  5. LAMICTAL [Concomitant]

REACTIONS (2)
  - BRADYPHRENIA [None]
  - EMOTIONAL DISORDER [None]
